FAERS Safety Report 7760362-4 (Version None)
Quarter: 2011Q3

REPORT INFORMATION
  Report Type: 
  Country: None (occurrence: None)
  Receive Date: 20110919
  Receipt Date: 20110914
  Transmission Date: 20111222
  Serious: Yes (Hospitalization, Other)
  Sender: FDA-Public Use
  Company Number: PHHY2011US63759

PATIENT
  Sex: Female

DRUGS (6)
  1. EXELON [Suspect]
     Indication: DEMENTIA
     Dosage: UNK UKN, UNK
     Route: 062
     Dates: start: 20110711, end: 20110712
  2. NEURONTIN [Concomitant]
     Dosage: UNK UKN, UNK
  3. TRAZODONE HCL [Concomitant]
     Dosage: UNK UKN, UNK
  4. CELEVAC [Concomitant]
     Dosage: UNK UKN, UNK
     Route: 048
  5. ALBUTEROL [Concomitant]
     Dosage: UNK UKN, UNK
  6. LORATADINE [Concomitant]
     Dosage: UNK UKN, UNK

REACTIONS (4)
  - UNRESPONSIVE TO STIMULI [None]
  - MENTAL STATUS CHANGES [None]
  - MUSCULAR WEAKNESS [None]
  - HYPOGLYCAEMIA [None]
